FAERS Safety Report 19182657 (Version 2)
Quarter: 2021Q2

REPORT INFORMATION
  Report Type: Spontaneous
  Country: US (occurrence: US)
  Receive Date: 20210427
  Receipt Date: 20210522
  Transmission Date: 20210717
  Serious: Yes (Other)
  Sender: FDA-Public Use
  Company Number: US-ORGANON-O2104USA001679

PATIENT
  Age: 21 Year
  Sex: Female
  Weight: 65.76 kg

DRUGS (2)
  1. ACCUTANE [Concomitant]
     Active Substance: ISOTRETINOIN
     Dosage: UNK
  2. NEXPLANON [Suspect]
     Active Substance: ETONOGESTREL
     Indication: CONTRACEPTION
     Dosage: 1 ROD/3 YEARS, IN LEFT UPPER ARM
     Route: 059
     Dates: start: 20201216

REACTIONS (6)
  - Muscle twitching [Not Recovered/Not Resolved]
  - Sinus bradycardia [Unknown]
  - Dizziness [Unknown]
  - Dizziness [Recovered/Resolved]
  - Loss of consciousness [Unknown]
  - Loss of consciousness [Recovered/Resolved]

NARRATIVE: CASE EVENT DATE: 2021
